FAERS Safety Report 12936744 (Version 2)
Quarter: 2016Q4

REPORT INFORMATION
  Report Type: Spontaneous
  Country: US (occurrence: US)
  Receive Date: 20161114
  Receipt Date: 20161114
  Transmission Date: 20170207
  Serious: Yes (Other)
  Sender: FDA-Public Use
  Company Number: US-BAYER-2016-210708

PATIENT
  Age: 80 Year
  Sex: Female
  Weight: 83.9 kg

DRUGS (9)
  1. LUTEIN [Concomitant]
     Active Substance: LUTEIN
  2. LOVASTATIN. [Concomitant]
     Active Substance: LOVASTATIN
     Dosage: UNK
  3. CENTRUM SILVER [Concomitant]
     Active Substance: MINERALS\VITAMINS
  4. LOSARTAN POTASSIUM. [Concomitant]
     Active Substance: LOSARTAN POTASSIUM
     Dosage: UNK
  5. MIRALAX [Suspect]
     Active Substance: POLYETHYLENE GLYCOL 3350
     Indication: IMPAIRED GASTRIC EMPTYING
     Dosage: 1- 1/2
     Route: 048
     Dates: start: 20161015, end: 20161030
  6. BAYER LOW DOSE [Suspect]
     Active Substance: ASPIRIN
     Dosage: UNK
  7. MUCOLASE [Concomitant]
  8. MICROGENICS PROBIOTIC 8 [Concomitant]
     Active Substance: LACTOBACILLUS ACIDOPHILUS
     Dosage: UNK
  9. MIRALAX [Suspect]
     Active Substance: POLYETHYLENE GLYCOL 3350
     Indication: CONSTIPATION

REACTIONS (7)
  - Abdominal pain [Recovered/Resolved]
  - Nausea [Recovered/Resolved]
  - Cardiac discomfort [Recovered/Resolved]
  - Off label use [None]
  - Product use issue [Unknown]
  - Underdose [Unknown]
  - Cold sweat [Recovered/Resolved]

NARRATIVE: CASE EVENT DATE: 20161020
